FAERS Safety Report 23925585 (Version 1)
Quarter: 2024Q2

REPORT INFORMATION
  Report Type: Spontaneous
  Country: ZA (occurrence: None)
  Receive Date: 20240531
  Receipt Date: 20240531
  Transmission Date: 20240716
  Serious: Yes (Hospitalization, Other)
  Sender: FDA-Public Use
  Company Number: 2024A122762

PATIENT
  Age: 50 Year
  Sex: Female

DRUGS (6)
  1. BUDESONIDE\FORMOTEROL FUMARATE DIHYDRATE [Suspect]
     Active Substance: BUDESONIDE\FORMOTEROL FUMARATE DIHYDRATE
     Indication: Asthma
     Dosage: 160 MG 120 DOSES, UNKNOWN UNKNOWN
     Route: 055
  2. PERINDOPRIL [Concomitant]
     Active Substance: PERINDOPRIL
     Indication: Hypertension
     Dosage: 5.0MG UNKNOWN
     Route: 048
  3. ZOLPIDEM TARTRATE [Concomitant]
     Active Substance: ZOLPIDEM TARTRATE
     Dosage: 12.0MG UNKNOWN
     Route: 048
  4. PREXUM 5 PLUS [Concomitant]
     Indication: Hypertension
     Dosage: 5.0MG UNKNOWN
     Route: 048
  5. AGOMELATINE [Concomitant]
     Active Substance: AGOMELATINE
     Dosage: 25.0MG UNKNOWN
     Route: 048
  6. FLOSPASM [Concomitant]
     Dosage: 200.0MG UNKNOWN
     Route: 048

REACTIONS (6)
  - Brain neoplasm [Unknown]
  - Hypoaesthesia [Unknown]
  - Dyspnoea [Unknown]
  - Cystitis [Unknown]
  - Insomnia [Unknown]
  - Headache [Unknown]
